FAERS Safety Report 9839201 (Version 1)
Quarter: 2014Q1

REPORT INFORMATION
  Report Type: Spontaneous
  Country: US (occurrence: US)
  Receive Date: 20140123
  Receipt Date: 20140123
  Transmission Date: 20141002
  Serious: Yes (Hospitalization)
  Sender: FDA-Public Use
  Company Number: US-GILEAD-2014-0092788

PATIENT
  Sex: Female

DRUGS (2)
  1. LETAIRIS [Suspect]
     Indication: PRODUCT USED FOR UNKNOWN INDICATION
     Dosage: 5 MG, UNK
     Route: 048
     Dates: start: 20120523
  2. RIOCIGUAT [Concomitant]

REACTIONS (5)
  - Feeling abnormal [Unknown]
  - Confusional state [Unknown]
  - Agitation [Unknown]
  - Restlessness [Unknown]
  - Tremor [Unknown]
